FAERS Safety Report 5373618-X (Version None)
Quarter: 2007Q2

REPORT INFORMATION
  Report Type: 
  Country: None (occurrence: None)
  Receive Date: 20070627
  Receipt Date: 20070115
  Transmission Date: 20071010
  Serious: Yes (Other)
  Sender: FDA-Public Use
  Company Number: 411273

PATIENT
  Age: 68 Year
  Sex: Female
  Weight: 117.9 kg

DRUGS (1)
  1. XELODA [Suspect]
     Indication: DRUG USE FOR UNKNOWN INDICATION
     Dosage: 2600 UNIT DAILY ORAL
     Route: 048
     Dates: start: 20050406, end: 20061106

REACTIONS (8)
  - BLEPHARITIS [None]
  - BLOOD GLUCOSE INCREASED [None]
  - DIARRHOEA [None]
  - EYE DISORDER [None]
  - PALMAR-PLANTAR ERYTHRODYSAESTHESIA SYNDROME [None]
  - SKIN FISSURES [None]
  - STOMACH DISCOMFORT [None]
  - STOMATITIS [None]
